FAERS Safety Report 5748640-1 (Version None)
Quarter: 2008Q2

REPORT INFORMATION
  Report Type: 
  Country: None (occurrence: None)
  Receive Date: 20080521
  Receipt Date: 20080505
  Transmission Date: 20081010
  Serious: Yes (Other)
  Sender: FDA-Public Use
  Company Number: 2008AL004664

PATIENT
  Age: 77 Year
  Sex: Male
  Weight: 68.0396 kg

DRUGS (17)
  1. DIGOXIN [Suspect]
     Dosage: 250MCG DAILY
     Dates: start: 20050515, end: 20050708
  2. DIGOXIN [Suspect]
     Dosage: 125MCG DAILY
     Dates: start: 20050722
  3. ALAMAG [Concomitant]
  4. ARICEPT [Concomitant]
  5. ASPIRIN [Concomitant]
  6. DILTIAZEM HCL [Interacting]
  7. XALATAN [Concomitant]
  8. DOCUSATE SODIUM [Concomitant]
  9. FERROUS SULFATE TAB [Concomitant]
  10. LORATADINE [Concomitant]
  11. POTASSIUM CHLORIDE [Concomitant]
  12. PRILOSEC [Concomitant]
  13. TRIAMTERENE AND HYDROCHLOROTHIAZIDE [Concomitant]
  14. LOTENSIN [Concomitant]
  15. MAALOX [Concomitant]
  16. ACTETAMINOPHEN [Concomitant]
  17. MILK OF MAGNESIA [Concomitant]

REACTIONS (2)
  - CARDIOACTIVE DRUG LEVEL ABOVE THERAPEUTIC [None]
  - THERAPEUTIC AGENT TOXICITY [None]
